FAERS Safety Report 16163947 (Version 1)
Quarter: 2019Q2

REPORT INFORMATION
  Report Type: Spontaneous
  Country: US (occurrence: US)
  Receive Date: 20190405
  Receipt Date: 20190405
  Transmission Date: 20190711
  Serious: No
  Sender: FDA-Public Use
  Company Number: US-AMREGENT-20190454

PATIENT
  Sex: Female

DRUGS (1)
  1. HYDROXYPROGESTERONE CAPROATE  INJECTION, USP (0517-1767-01) [Suspect]
     Active Substance: HYDROXYPROGESTERONE CAPROATE
     Dosage: UNKNOWN
     Route: 051
     Dates: start: 201902, end: 201903

REACTIONS (2)
  - Injection site mass [Not Recovered/Not Resolved]
  - Exposure during pregnancy [Unknown]
